FAERS Safety Report 4634885-0 (Version None)
Quarter: 2005Q2

REPORT INFORMATION
  Report Type: 
  Country: None (occurrence: None)
  Receive Date: 20050412
  Receipt Date: 20050407
  Transmission Date: 20051028
  Serious: Yes (Death, Life-Threatening)
  Sender: FDA-Public Use
  Company Number: 2005CG00579

PATIENT
  Age: 73 Year
  Sex: Male

DRUGS (8)
  1. NEXIUM [Suspect]
     Dosage: 40 MG DAILY PO
     Route: 048
     Dates: start: 20050222, end: 20050226
  2. AERIUS [Suspect]
     Dosage: 1 DF DAILY PO
     Route: 048
     Dates: start: 20050222, end: 20050226
  3. ZYLORIC ^GLAXO WELLCOME^ [Suspect]
     Dosage: 1 DF DAILY PO
     Route: 048
     Dates: end: 20050226
  4. TRIATEC [Suspect]
     Dosage: 2.5 MG DAILY PO
     Route: 048
     Dates: start: 20050101, end: 20050119
  5. TRIATEC [Suspect]
     Dosage: 5 MG DAILY PO
     Route: 048
     Dates: start: 20050120, end: 20050226
  6. TENORMIN [Concomitant]
  7. KARDEGIC /FRA/ [Concomitant]
  8. LASILIX [Concomitant]

REACTIONS (7)
  - AGRANULOCYTOSIS [None]
  - BONE MARROW TOXICITY [None]
  - BRONCHITIS [None]
  - C-REACTIVE PROTEIN INCREASED [None]
  - CARDIAC ARREST [None]
  - LUNG INFECTION [None]
  - SEPTIC SHOCK [None]
